FAERS Safety Report 22197566 (Version 1)
Quarter: 2023Q2

REPORT INFORMATION
  Report Type: Spontaneous
  Country: US (occurrence: None)
  Receive Date: 20230411
  Receipt Date: 20230411
  Transmission Date: 20230721
  Serious: Yes (Disabling)
  Sender: FDA-Public Use
  Company Number: None

PATIENT
  Age: 50 Year
  Sex: Female

DRUGS (1)
  1. GABAPENTIN [Suspect]
     Active Substance: GABAPENTIN

REACTIONS (10)
  - Inadequate analgesia [None]
  - Suicidal ideation [None]
  - Cognitive disorder [None]
  - Autonomic nervous system imbalance [None]
  - Respiration abnormal [None]
  - Suicide attempt [None]
  - Intentional overdose [None]
  - Dehydration [None]
  - Tachycardia [None]
  - Impaired work ability [None]

NARRATIVE: CASE EVENT DATE: 20220702
